FAERS Safety Report 4429486-3 (Version None)
Quarter: 2004Q3

REPORT INFORMATION
  Report Type: 
  Country: None (occurrence: None)
  Receive Date: 20040819
  Receipt Date: 20040720
  Transmission Date: 20050211
  Serious: Yes (Death)
  Sender: FDA-Public Use
  Company Number: CH-BRISTOL-MYERS SQUIBB COMPANY-12670212

PATIENT
  Age: 40 Year
  Sex: Male

DRUGS (5)
  1. ABILIFY [Suspect]
     Indication: SCHIZOPHRENIA
     Route: 048
     Dates: start: 20040621, end: 20040720
  2. ZYPREXA [Concomitant]
     Dates: end: 20040712
  3. SOLIAN [Concomitant]
     Dates: start: 20030101
  4. TEMESTA [Concomitant]
     Dates: start: 20040710
  5. EFFEXOR [Concomitant]
     Dates: start: 20020101

REACTIONS (3)
  - AGITATION [None]
  - COMPLETED SUICIDE [None]
  - PSYCHOTIC DISORDER [None]
